FAERS Safety Report 7254776-9 (Version None)
Quarter: 2011Q1

REPORT INFORMATION
  Report Type: 
  Country: None (occurrence: None)
  Receive Date: 20110129
  Receipt Date: 20100311
  Transmission Date: 20110831
  Serious: No
  Sender: FDA-Public Use
  Company Number: US-ABBOTT-10P-163-0631969-00

PATIENT
  Sex: Female
  Weight: 56.296 kg

DRUGS (8)
  1. PRAVASTATIN [Concomitant]
     Indication: PRODUCT USED FOR UNKNOWN INDICATION
  2. FENOFIBRATE [Concomitant]
     Indication: BLOOD CHOLESTEROL INCREASED
  3. LEVOTHYROXINE SODIUM [Concomitant]
     Indication: HYPOTHYROIDISM
  4. LISINOPRIL [Concomitant]
     Indication: HYPERTENSION
  5. RANITIDINE [Concomitant]
     Indication: DYSPEPSIA
  6. ASPIRIN [Concomitant]
     Indication: PRODUCT USED FOR UNKNOWN INDICATION
  7. HUMIRA [Suspect]
     Indication: RHEUMATOID ARTHRITIS
     Dates: start: 20100209
  8. DILTIAZER CD [Concomitant]
     Indication: HYPERTENSION

REACTIONS (1)
  - INJECTION SITE PAIN [None]
